FAERS Safety Report 16321655 (Version 1)
Quarter: 2019Q2

REPORT INFORMATION
  Report Type: Report from Study
  Country: HN (occurrence: HN)
  Receive Date: 20190516
  Receipt Date: 20190516
  Transmission Date: 20190711
  Serious: Yes (Other)
  Sender: FDA-Public Use
  Company Number: PHHY2019HN110489

PATIENT
  Age: 87 Year
  Sex: Female
  Weight: 65.31 kg

DRUGS (1)
  1. VYMADA [Suspect]
     Active Substance: SACUBITRIL\VALSARTAN
     Indication: PRODUCT USED FOR UNKNOWN INDICATION
     Dosage: 50 MG, UNK
     Route: 065

REACTIONS (4)
  - Decreased appetite [Unknown]
  - Noninfective encephalitis [Unknown]
  - Body temperature increased [Unknown]
  - Malaise [Unknown]
